FAERS Safety Report 21965783 (Version 4)
Quarter: 2023Q1

REPORT INFORMATION
  Report Type: Report from Study
  Country: US (occurrence: US)
  Receive Date: 20230208
  Receipt Date: 20230308
  Transmission Date: 20230418
  Serious: No
  Sender: FDA-Public Use
  Company Number: US-002147023-NVSC2023US023706

PATIENT
  Sex: Male

DRUGS (1)
  1. ENTRESTO [Suspect]
     Active Substance: SACUBITRIL\VALSARTAN
     Indication: Product used for unknown indication
     Dosage: 1 DOSAGE FORM, BID
     Route: 048
     Dates: start: 202301

REACTIONS (7)
  - Heart rate abnormal [Unknown]
  - Swelling [Not Recovered/Not Resolved]
  - Eructation [Unknown]
  - Weight fluctuation [Unknown]
  - Peripheral swelling [Unknown]
  - Abdominal distension [Unknown]
  - Blood pressure decreased [Unknown]
